FAERS Safety Report 14333397 (Version 1)
Quarter: 2017Q4

REPORT INFORMATION
  Report Type: Spontaneous
  Country: US (occurrence: US)
  Receive Date: 20171228
  Receipt Date: 20171228
  Transmission Date: 20180321
  Serious: Yes (Hospitalization, Other)
  Sender: FDA-Public Use
  Company Number: US-TEVA-2017-US-839703

PATIENT
  Age: 84 Year
  Sex: Female

DRUGS (17)
  1. ALENDRONATE [Suspect]
     Active Substance: ALENDRONATE SODIUM
     Dosage: 10 DAILY
     Route: 065
  2. ST. JOHNS WORT [Interacting]
     Active Substance: HYPERICUM PERFORATUM
     Dosage: 300
     Route: 065
  3. NIACIN. [Interacting]
     Active Substance: NIACIN
     Route: 065
  4. GLIBENCLAMIDE [Interacting]
     Active Substance: GLYBURIDE
     Dosage: 10 DAILY (EXTENDED-RELEASE)
     Route: 065
  5. HYDROXYZINE [Interacting]
     Active Substance: HYDROXYZINE HYDROCHLORIDE
     Dosage: 50 AT BEDTIME
     Route: 065
  6. METFORMIN [Interacting]
     Active Substance: METFORMIN HYDROCHLORIDE
     Dosage: 850
     Route: 065
  7. GINKGO [Interacting]
     Active Substance: GINKGO
     Indication: DEMENTIA ALZHEIMER^S TYPE
     Route: 065
  8. CELECOXIB. [Interacting]
     Active Substance: CELECOXIB
     Dosage: 200
     Route: 065
  9. AMITRIPTYLINE [Interacting]
     Active Substance: AMITRIPTYLINE
     Dosage: 75 AT BEDTIME
     Route: 065
  10. PIOGLITAZONE. [Interacting]
     Active Substance: PIOGLITAZONE
     Dosage: 450 DAILY
     Route: 065
  11. PAROXETINE. [Interacting]
     Active Substance: PAROXETINE
     Dosage: 40 DAILY
     Route: 065
  12. DILTIAZEM. [Interacting]
     Active Substance: DILTIAZEM
     Dosage: 300 DAILY (EXTENDED-RELEASE )
     Route: 065
  13. ASCORBIC ACID. [Interacting]
     Active Substance: ASCORBIC ACID
     Route: 065
  14. SIMVASTATIN. [Suspect]
     Active Substance: SIMVASTATIN
     Dosage: 40-DAILY
  15. CINNAMON. [Interacting]
     Active Substance: CINNAMON
     Route: 065
  16. CHROMIUM [Interacting]
     Active Substance: CHROMIC CHLORIDE\CHROMIUM
     Route: 065
  17. GLUCOSAMINE [Interacting]
     Active Substance: GLUCOSAMINE
     Route: 065

REACTIONS (6)
  - Mobility decreased [Recovering/Resolving]
  - Cognitive disorder [Recovering/Resolving]
  - Dementia Alzheimer^s type [Recovering/Resolving]
  - Fall [Recovering/Resolving]
  - Drug interaction [Recovering/Resolving]
  - Delirium [Recovering/Resolving]
